FAERS Safety Report 25538945 (Version 1)
Quarter: 2025Q3

REPORT INFORMATION
  Report Type: Spontaneous
  Country: EU (occurrence: EU)
  Receive Date: 20250710
  Receipt Date: 20250710
  Transmission Date: 20251021
  Serious: Yes (Other)
  Sender: BIOCODEX
  Company Number: EU-BIOCODEX2-2025000965

PATIENT
  Sex: Female

DRUGS (7)
  1. STIRIPENTOL [Suspect]
     Active Substance: STIRIPENTOL
     Indication: Severe myoclonic epilepsy of infancy
     Dosage: 500 MG PER DAY
     Route: 065
     Dates: start: 201012, end: 201703
  2. STIRIPENTOL [Suspect]
     Active Substance: STIRIPENTOL
     Indication: Severe myoclonic epilepsy of infancy
     Dosage: 750 MG PER DAY
     Route: 065
     Dates: start: 20200304
  3. STIRIPENTOL [Suspect]
     Active Substance: STIRIPENTOL
     Indication: Severe myoclonic epilepsy of infancy
     Dosage: 500 MG TWICE DAILY
     Route: 065
     Dates: start: 20200304
  4. VALPROIC ACID [Concomitant]
     Active Substance: VALPROIC ACID
     Indication: Product used for unknown indication
     Dosage: 100 MG + 200 MG/DAY
     Route: 065
  5. CLOBAZAM [Concomitant]
     Active Substance: CLOBAZAM
     Indication: Severe myoclonic epilepsy of infancy
     Dosage: 5 MG TWICE DAILY
     Route: 065
  6. TOPIRAMATE [Concomitant]
     Active Substance: TOPIRAMATE
     Indication: Product used for unknown indication
     Dosage: 100 MG TWICE DAILY
     Route: 065
  7. TOPIRAMATE [Concomitant]
     Active Substance: TOPIRAMATE
     Indication: Product used for unknown indication
     Dosage: RECENTLY INCREASED TO 200 MG TWICE DAILY
     Route: 065

REACTIONS (6)
  - Motor dysfunction [Unknown]
  - Condition aggravated [Unknown]
  - Gait disturbance [Unknown]
  - Generalised tonic-clonic seizure [Unknown]
  - Petit mal epilepsy [Unknown]
  - Seizure [Unknown]

NARRATIVE: CASE EVENT DATE: 20150101
